FAERS Safety Report 10020593 (Version 2)
Quarter: 2014Q1

REPORT INFORMATION
  Report Type: Report from Study
  Country: DE (occurrence: DE)
  Receive Date: 20140319
  Receipt Date: 20140319
  Transmission Date: 20141002
  Serious: Yes (Other)
  Sender: FDA-Public Use
  Company Number: PHHY2012DE094136

PATIENT
  Sex: Female
  Weight: 69 kg

DRUGS (3)
  1. FTY 720 [Suspect]
     Indication: MULTIPLE SCLEROSIS
     Dosage: 0.5 MG, PER DAY
     Route: 048
     Dates: start: 20110926, end: 20130826
  2. TOLPERISONE [Concomitant]
     Indication: MUSCLE SPASTICITY
     Dosage: 50 MG, TID
     Route: 048
     Dates: start: 20090612
  3. SATIVEX [Concomitant]
     Dosage: 100 UL, QD
     Dates: start: 20121220

REACTIONS (5)
  - Hepatic enzyme increased [Recovered/Resolved]
  - Gamma-glutamyltransferase increased [Not Recovered/Not Resolved]
  - Aspartate aminotransferase increased [Unknown]
  - Alanine aminotransferase increased [Unknown]
  - Blood bilirubin increased [Not Recovered/Not Resolved]
